FAERS Safety Report 10155959 (Version 1)
Quarter: 2014Q2

REPORT INFORMATION
  Report Type: Report from Study
  Country: HR (occurrence: HR)
  Receive Date: 20140506
  Receipt Date: 20140506
  Transmission Date: 20141212
  Serious: Yes (Hospitalization)
  Sender: FDA-Public Use
  Company Number: HR-MYLANLABS-2014S1009860

PATIENT
  Sex: 0

DRUGS (1)
  1. CLOPIDOGREL [Suspect]
     Route: 065

REACTIONS (2)
  - Myocardial infarction [Unknown]
  - Drug interaction [Unknown]
